FAERS Safety Report 24411040 (Version 1)
Quarter: 2024Q4

REPORT INFORMATION
  Report Type: Report from Study
  Country: DE (occurrence: DE)
  Receive Date: 20241008
  Receipt Date: 20241008
  Transmission Date: 20250115
  Serious: Yes (Other)
  Sender: SANDOZ
  Company Number: DE-002147023-NVSC2021DE010407

PATIENT
  Age: 47 Year
  Sex: Male
  Weight: 84 kg

DRUGS (11)
  1. FILGRASTIM [Suspect]
     Active Substance: FILGRASTIM
     Dosage: 3420 UG ( 5X30 MU/0.5 ML AND 4X48 MU/0.5 ML)
     Route: 058
     Dates: start: 20120922, end: 20120926
  2. FILGRASTIM [Suspect]
     Active Substance: FILGRASTIM
     Indication: Stem cell donor
     Dosage: 3420 UG ( 5X30 MU/0.5 ML AND 4X48 MU/0.5 ML)
     Route: 058
     Dates: start: 20120922, end: 20120926
  3. FILGRASTIM [Suspect]
     Active Substance: FILGRASTIM
     Dosage: 3420 UG ( 5X30 MU/0.5 ML AND 4X48 MU/0.5 ML)
     Route: 058
     Dates: start: 20120922, end: 20120926
  4. FERROUS SULFATE ANHYDROUS [Concomitant]
     Active Substance: FERROUS SULFATE ANHYDROUS
     Indication: Blood iron decreased
     Dosage: UNK
     Route: 065
     Dates: start: 20120910
  5. FERROUS SULFATE ANHYDROUS [Concomitant]
     Active Substance: FERROUS SULFATE ANHYDROUS
     Indication: Serum ferritin decreased
  6. Novalgin [Concomitant]
     Indication: Product used for unknown indication
     Dosage: 30 DRP
     Route: 048
     Dates: start: 20120926, end: 20120926
  7. Novalgin [Concomitant]
     Dosage: UNK
     Route: 030
     Dates: start: 201302, end: 201302
  8. ACETAMINOPHEN [Concomitant]
     Active Substance: ACETAMINOPHEN
     Indication: Product used for unknown indication
     Dosage: 1000 MG
     Route: 048
     Dates: start: 20120923, end: 20120923
  9. ACETAMINOPHEN [Concomitant]
     Active Substance: ACETAMINOPHEN
     Dosage: 1000 MG
     Route: 048
     Dates: start: 20120924, end: 20120924
  10. ACETAMINOPHEN [Concomitant]
     Active Substance: ACETAMINOPHEN
     Dosage: 1000 MG
     Route: 048
     Dates: start: 20120926, end: 20120926
  11. ACETAMINOPHEN [Concomitant]
     Active Substance: ACETAMINOPHEN
     Dosage: 1500 MG
     Route: 048
     Dates: start: 20120925, end: 20120925

REACTIONS (6)
  - Chronic lymphocytic leukaemia [Not Recovered/Not Resolved]
  - Superficial vein thrombosis [Not Recovered/Not Resolved]
  - Hyperlipidaemia [Not Recovered/Not Resolved]
  - Back pain [Recovered/Resolved]
  - Back pain [Recovered/Resolved]
  - Lymphocytosis [Not Recovered/Not Resolved]

NARRATIVE: CASE EVENT DATE: 20130101
